FAERS Safety Report 4714102-3 (Version None)
Quarter: 2005Q2

REPORT INFORMATION
  Report Type: 
  Country: None (occurrence: None)
  Receive Date: 20050630
  Receipt Date: 20041018
  Transmission Date: 20051028
  Serious: Yes (Hospitalization)
  Sender: FDA-Public Use
  Company Number: 383720

PATIENT
  Age: 46 Year
  Sex: Male

DRUGS (1)
  1. ROFERON-A [Suspect]
     Indication: HEPATITIS C
     Dosage: 3 MILLIONIU 3 PER DAY OTHER
     Dates: start: 20031120

REACTIONS (1)
  - DEPRESSION [None]
